FAERS Safety Report 20917821 (Version 2)
Quarter: 2025Q1

REPORT INFORMATION
  Report Type: Spontaneous
  Country: US (occurrence: US)
  Receive Date: 20220606
  Receipt Date: 20250103
  Transmission Date: 20250408
  Serious: No
  Sender: BRISTOL-MYERS SQUIBB COMPANY
  Company Number: US-BRISTOL-MYERS SQUIBB COMPANY-2022-038377

PATIENT
  Age: 59 Year
  Sex: Male

DRUGS (1)
  1. REVLIMID [Suspect]
     Active Substance: LENALIDOMIDE
     Indication: Plasma cell myeloma
     Route: 048
     Dates: start: 20220411

REACTIONS (3)
  - Pain [Unknown]
  - Pyrexia [Unknown]
  - Ageusia [Unknown]
